FAERS Safety Report 21880252 (Version 1)
Quarter: 2023Q1

REPORT INFORMATION
  Report Type: Report from Study
  Country: US (occurrence: US)
  Receive Date: 20230118
  Receipt Date: 20230118
  Transmission Date: 20230417
  Serious: No
  Sender: FDA-Public Use
  Company Number: US-ABBVIE-4242558

PATIENT
  Sex: Female

DRUGS (1)
  1. HUMIRA [Suspect]
     Active Substance: ADALIMUMAB
     Indication: Rheumatoid arthritis
     Dosage: CITRATE FREE, FORM STRENGTH: 40 MILLIGRAM, THERAPY END DATE WAS 2022.
     Route: 058
     Dates: start: 202202

REACTIONS (5)
  - Facial pain [Unknown]
  - Rheumatoid arthritis [Unknown]
  - Device issue [Unknown]
  - Pain [Unknown]
  - Butterfly rash [Unknown]
